FAERS Safety Report 6909571-4 (Version None)
Quarter: 2010Q3

REPORT INFORMATION
  Report Type: 
  Country: None (occurrence: None)
  Receive Date: 20100805
  Receipt Date: 20100602
  Transmission Date: 20110219
  Serious: Yes (Hospitalization, Other)
  Sender: FDA-Public Use
  Company Number: PHHY2010DE36610

PATIENT
  Age: 25 Year
  Sex: Female
  Weight: 70 kg

DRUGS (3)
  1. VALDOXAN [Suspect]
     Indication: DEPRESSION
     Dosage: 25 MG, UNK
     Route: 048
     Dates: start: 20100601, end: 20100602
  2. VALDOXAN [Suspect]
     Dosage: 14 TABLETS (350 MG)
     Dates: start: 20100602
  3. CARBAMAZEPINE [Suspect]
     Dosage: 5600 MG, SINGLE DOSE
     Route: 048
     Dates: start: 20100602, end: 20100602

REACTIONS (6)
  - INTENTIONAL OVERDOSE [None]
  - MALAISE [None]
  - SOMNOLENCE [None]
  - SUICIDAL IDEATION [None]
  - SUICIDE ATTEMPT [None]
  - VOMITING [None]
